FAERS Safety Report 25268993 (Version 2)
Quarter: 2025Q2

REPORT INFORMATION
  Report Type: Spontaneous
  Country: TR (occurrence: TR)
  Receive Date: 20250505
  Receipt Date: 20250626
  Transmission Date: 20250717
  Serious: Yes (Hospitalization, Other)
  Sender: PFIZER
  Company Number: TR-PFIZER INC-PV202500051683

PATIENT
  Age: 40 Year
  Sex: Female

DRUGS (2)
  1. DEPO-PROVERA [Suspect]
     Active Substance: MEDROXYPROGESTERONE ACETATE
     Indication: Heavy menstrual bleeding
     Route: 030
     Dates: start: 20250106
  2. GYNOFERON [Concomitant]
     Indication: Anaemia

REACTIONS (4)
  - Uterine haemorrhage [Recovering/Resolving]
  - Uterine hypotonus [Recovering/Resolving]
  - Menstruation irregular [Unknown]
  - Off label use [Unknown]

NARRATIVE: CASE EVENT DATE: 20250101
